FAERS Safety Report 22356726 (Version 3)
Quarter: 2024Q4

REPORT INFORMATION
  Report Type: Spontaneous
  Country: US (occurrence: US)
  Receive Date: 20230523
  Receipt Date: 20241213
  Transmission Date: 20250115
  Serious: Yes (Hospitalization, Other)
  Sender: PFIZER
  Company Number: US-PFIZER INC-PV202300090540

PATIENT
  Age: 84 Year
  Sex: Male
  Weight: 97.52 kg

DRUGS (16)
  1. VYNDAMAX [Suspect]
     Active Substance: TAFAMIDIS
     Indication: Cardiac amyloidosis
     Dosage: 61 MG
     Dates: end: 2022
  2. VYNDAMAX [Suspect]
     Active Substance: TAFAMIDIS
     Indication: Acquired ATTR amyloidosis
     Dosage: 61 MILLIGRAMS, ONE TIME A DAY
     Dates: end: 20230901
  3. VYNDAMAX [Suspect]
     Active Substance: TAFAMIDIS
     Indication: Amyloidosis
  4. ALLOPURINOL [Concomitant]
     Active Substance: ALLOPURINOL
     Indication: Gout
     Dosage: 300 MG
  5. ATORVASTATIN [Concomitant]
     Active Substance: ATORVASTATIN
     Indication: Arteriosclerosis
     Dosage: 80 MG
  6. BREZTRI [Concomitant]
     Active Substance: BUDESONIDE\FORMOTEROL\GLYCOPYRROLATE
     Indication: Chronic obstructive pulmonary disease
     Dosage: UNK (160-9-4.8 MCG)
  7. ELIQUIS [Concomitant]
     Active Substance: APIXABAN
     Indication: Cardiac failure
     Dosage: 5 MG
  8. FINASTERIDE [Concomitant]
     Active Substance: FINASTERIDE
     Indication: Prostatitis
     Dosage: 5 MG
  9. FOLIC ACID [Concomitant]
     Active Substance: FOLIC ACID
     Dosage: 1 MG
  10. FUROSEMIDE [Concomitant]
     Active Substance: FUROSEMIDE
     Indication: Pericardial effusion
     Dosage: 40 MG
  11. GABAPENTIN [Concomitant]
     Active Substance: GABAPENTIN
     Indication: Herpes zoster
     Dosage: 300 MG
  12. OMEPRAZOLE [Concomitant]
     Active Substance: OMEPRAZOLE
     Indication: Gastrooesophageal reflux disease
     Dosage: 40 MG
  13. ENTRESTO [Concomitant]
     Active Substance: SACUBITRIL\VALSARTAN
     Indication: Cardiac failure
     Dosage: 25 MG
  14. B1 [Concomitant]
     Dosage: UNK
  15. VITAMIN C [Concomitant]
     Active Substance: ASCORBIC ACID
     Indication: Contusion
     Dosage: UNK
  16. MAGNESIUM [Concomitant]
     Active Substance: MAGNESIUM
     Dosage: UNK

REACTIONS (5)
  - Cerebrovascular accident [Unknown]
  - Pneumonia [Unknown]
  - Bronchitis [Unknown]
  - Hypoacusis [Unknown]
  - Product dose omission in error [Unknown]

NARRATIVE: CASE EVENT DATE: 20220101
